FAERS Safety Report 23735950 (Version 1)
Quarter: 2024Q2

REPORT INFORMATION
  Report Type: Spontaneous
  Country: FR (occurrence: FR)
  Receive Date: 20240412
  Receipt Date: 20240412
  Transmission Date: 20240716
  Serious: Yes (Death, Other)
  Sender: FDA-Public Use
  Company Number: None

PATIENT
  Age: 70 Year
  Sex: Female
  Weight: 97 kg

DRUGS (2)
  1. PEMBROLIZUMAB [Suspect]
     Active Substance: PEMBROLIZUMAB
     Indication: Ovarian cancer stage IV
     Dosage: C1
     Route: 042
     Dates: start: 20240229, end: 20240229
  2. LENVATINIB MESYLATE [Suspect]
     Active Substance: LENVATINIB MESYLATE
     Indication: Ovarian cancer stage IV
     Dosage: UNKNOWN
     Route: 048
     Dates: start: 20240229, end: 20240314

REACTIONS (3)
  - Cardiogenic shock [Fatal]
  - Myocarditis [Fatal]
  - Bradycardia [Fatal]

NARRATIVE: CASE EVENT DATE: 20240314
